FAERS Safety Report 11286288 (Version 1)
Quarter: 2015Q3

REPORT INFORMATION
  Report Type: Spontaneous
  Country: US (occurrence: US)
  Receive Date: 20150721
  Receipt Date: 20150721
  Transmission Date: 20151125
  Serious: No
  Sender: FDA-Public Use
  Company Number: US-UNITED THERAPEUTICS-UNT-2015-001504

PATIENT
  Sex: Female
  Weight: 37.19 kg

DRUGS (8)
  1. ASPIRIN                            /00002701/ [Concomitant]
     Active Substance: ASPIRIN
     Indication: PRODUCT USED FOR UNKNOWN INDICATION
  2. LETAIRIS [Concomitant]
     Active Substance: AMBRISENTAN
     Indication: PRODUCT USED FOR UNKNOWN INDICATION
  3. TYVASO [Suspect]
     Active Substance: TREPROSTINIL
     Dosage: 18 TO 54 MICROGRAMS, QID
     Dates: start: 20091028
  4. ORENITRAM [Suspect]
     Active Substance: TREPROSTINIL
     Dosage: 0.25 MG, Q12H
     Route: 048
     Dates: start: 20150130
  5. ADCIRCA [Concomitant]
     Active Substance: TADALAFIL
     Indication: PRODUCT USED FOR UNKNOWN INDICATION
  6. TYVASO [Suspect]
     Active Substance: TREPROSTINIL
     Indication: PULMONARY HYPERTENSION
     Dosage: 18 TO 54 MICROGRAMS, QID
     Dates: start: 20100714
  7. ORENITRAM [Suspect]
     Active Substance: TREPROSTINIL
     Indication: PULMONARY HYPERTENSION
     Dosage: 1.75 MG, Q12H
     Route: 048
     Dates: start: 20150130
  8. ORENITRAM [Suspect]
     Active Substance: TREPROSTINIL
     Dosage: 2 MG, Q12H
     Route: 048
     Dates: start: 20150130

REACTIONS (4)
  - Sinusitis [Recovered/Resolved]
  - Headache [Recovered/Resolved]
  - Pain in jaw [Not Recovered/Not Resolved]
  - Temporomandibular joint syndrome [Recovered/Resolved]
